FAERS Safety Report 8617546-2 (Version None)
Quarter: 2012Q3

REPORT INFORMATION
  Report Type: 
  Country: None (occurrence: None)
  Receive Date: 20120824
  Receipt Date: 20120815
  Transmission Date: 20120928
  Serious: Yes (Hospitalization, Disabling, Other)
  Sender: FDA-Public Use
  Company Number: US-009507513-1206USA04713

PATIENT

DRUGS (4)
  1. VITAMINS (UNSPECIFIED) [Concomitant]
     Indication: PROPHYLAXIS
     Dosage: UNK, QD
  2. BONIVA [Suspect]
     Indication: PRODUCT USED FOR UNKNOWN INDICATION
     Dosage: UNK
     Route: 048
     Dates: start: 20070101
  3. FOSAMAX [Suspect]
     Indication: OSTEOPENIA
  4. FOSAMAX [Suspect]
     Indication: OSTEOPOROSIS
     Dosage: UNK
     Route: 048
     Dates: start: 19960101

REACTIONS (22)
  - OSTEOPOROSIS [None]
  - LOW TURNOVER OSTEOPATHY [None]
  - STRESS FRACTURE [None]
  - BLOOD CHOLESTEROL INCREASED [None]
  - MULTIPLE SCLEROSIS [None]
  - HYSTERECTOMY [None]
  - FEMUR FRACTURE [None]
  - CLOSED FRACTURE MANIPULATION [None]
  - POSTOPERATIVE WOUND INFECTION [None]
  - PAIN IN EXTREMITY [None]
  - FOOT OPERATION [None]
  - PNEUMONIA [None]
  - MUSCULAR WEAKNESS [None]
  - FOOT FRACTURE [None]
  - ARTHRITIS [None]
  - TONSILLECTOMY [None]
  - FALL [None]
  - URINARY TRACT INFECTION [None]
  - ARTHRALGIA [None]
  - HYPERTENSION [None]
  - DIABETES MELLITUS [None]
  - WOUND DEHISCENCE [None]
